FAERS Safety Report 4605549-4 (Version None)
Quarter: 2005Q1

REPORT INFORMATION
  Report Type: 
  Country: None (occurrence: None)
  Receive Date: 20050310
  Receipt Date: 20040923
  Transmission Date: 20050727
  Serious: No
  Sender: FDA-Public Use
  Company Number: US-BRISTOL-MYERS SQUIBB COMPANY-12714051

PATIENT
  Age: 56 Year
  Sex: Female

DRUGS (5)
  1. MONISTAT [Suspect]
     Indication: VAGINAL MYCOSIS
     Route: 048
     Dates: start: 20040920, end: 20040920
  2. VIOXX [Concomitant]
  3. LEXAPRO [Concomitant]
  4. LAMICTAL [Concomitant]
  5. THYROID PREPARATION [Concomitant]

REACTIONS (1)
  - DRUG INEFFECTIVE [None]
